FAERS Safety Report 13484060 (Version 1)
Quarter: 2017Q2

REPORT INFORMATION
  Report Type: Spontaneous
  Country: IR (occurrence: IR)
  Receive Date: 20170425
  Receipt Date: 20170425
  Transmission Date: 20170830
  Serious: Yes (Death, Life-Threatening, Hospitalization, Other)
  Sender: FDA-Public Use
  Company Number: IR-CHARTWELL PHARMA-1065833

PATIENT
  Age: 35 Year
  Sex: Male

DRUGS (9)
  1. GENTAMICIN. [Concomitant]
     Active Substance: GENTAMICIN
  2. DOXYCYCLINE. [Suspect]
     Active Substance: DOXYCYCLINE
     Route: 048
  3. CEFTRIAXONE. [Concomitant]
     Active Substance: CEFTRIAXONE
  4. DIAZEPAM. [Concomitant]
     Active Substance: DIAZEPAM
  5. NAPROXEN. [Suspect]
     Active Substance: NAPROXEN
     Indication: ENDOCARDITIS BACTERIAL
     Route: 048
  6. PHENYTOIN. [Suspect]
     Active Substance: PHENYTOIN
  7. CARVEDILOL. [Suspect]
     Active Substance: CARVEDILOL
     Route: 048
  8. RIFAMPIN. [Suspect]
     Active Substance: RIFAMPIN
     Route: 048
  9. SULFAMETHOXAZOLE AND TRIMETHOPRIM [Suspect]
     Active Substance: SULFAMETHOXAZOLE\TRIMETHOPRIM

REACTIONS (1)
  - Hepatorenal failure [Fatal]
